FAERS Safety Report 8483808 (Version 4)
Quarter: 2015Q1

REPORT INFORMATION
  Report Type: Spontaneous
  Country: US (occurrence: US)
  Receive Date: 20120329
  Receipt Date: 20150213
  Transmission Date: 20150721
  Serious: Yes (Life-Threatening, Hospitalization, Other)
  Sender: FDA-Public Use
  Company Number: US-ASTRAZENECA-2012SE14845

PATIENT
  Age: 68 Year
  Sex: Male

DRUGS (1)
  1. SYMBICORT [Suspect]
     Active Substance: BUDESONIDE\FORMOTEROL FUMARATE DIHYDRATE
     Indication: CHRONIC OBSTRUCTIVE PULMONARY DISEASE
     Dosage: 160/4.5 UG, FREQUENCY UNKNOWN
     Route: 055

REACTIONS (11)
  - Apparent death [Unknown]
  - Dyspnoea [Unknown]
  - Upper respiratory tract infection [Unknown]
  - Cardiac failure congestive [Unknown]
  - Malaise [Unknown]
  - Renal failure [Unknown]
  - Insomnia [Unknown]
  - Drug dose omission [Unknown]
  - Pneumonia [Unknown]
  - Bronchitis [Unknown]
  - Cardiac failure [Unknown]

NARRATIVE: CASE EVENT DATE: 201301
